FAERS Safety Report 12192055 (Version 2)
Quarter: 2016Q2

REPORT INFORMATION
  Report Type: Spontaneous
  Country: US (occurrence: US)
  Receive Date: 20160318
  Receipt Date: 20160501
  Transmission Date: 20160815
  Serious: No
  Sender: FDA-Public Use
  Company Number: US-TAKEDA-2016TUS004327

PATIENT
  Age: 64 Year
  Sex: Female
  Weight: 86.17 kg

DRUGS (9)
  1. WELLBUTRIN [Suspect]
     Active Substance: BUPROPION HYDROCHLORIDE
     Dosage: 300 MG, QD
     Route: 048
  2. THORAZINE [Suspect]
     Active Substance: CHLORPROMAZINE
     Indication: SLEEP DISORDER
     Dosage: 50 MG, UNK
     Route: 065
  3. ATIVAN [Concomitant]
     Active Substance: LORAZEPAM
     Indication: ANXIETY
     Dosage: 0.5 MG, UNK
     Route: 048
  4. ALBUTEROL SULFATE. [Concomitant]
     Active Substance: ALBUTEROL SULFATE
     Indication: ASTHMA
     Dosage: UNK
  5. CONTRAVE [Suspect]
     Active Substance: BUPROPION HYDROCHLORIDE\NALTREXONE HYDROCHLORIDE
     Indication: OBESITY
     Dosage: 8/90MG, UNK
     Route: 048
     Dates: start: 20160105
  6. THORAZINE [Suspect]
     Active Substance: CHLORPROMAZINE
     Indication: ANXIETY
  7. WELLBUTRIN [Suspect]
     Active Substance: BUPROPION HYDROCHLORIDE
     Indication: DEPRESSION
     Dosage: 300 MG, QD
     Route: 048
  8. THORAZINE [Suspect]
     Active Substance: CHLORPROMAZINE
     Indication: DEPRESSION
  9. ATIVAN [Concomitant]
     Active Substance: LORAZEPAM
     Indication: DEPRESSION

REACTIONS (6)
  - Dizziness [Recovered/Resolved]
  - Nausea [Recovered/Resolved]
  - Headache [Recovered/Resolved]
  - Balance disorder [Recovered/Resolved]
  - Feeling abnormal [Recovered/Resolved]
  - Contraindicated drug administered [Unknown]

NARRATIVE: CASE EVENT DATE: 20160106
